FAERS Safety Report 5242978-2 (Version None)
Quarter: 2007Q1

REPORT INFORMATION
  Report Type: 
  Country: None (occurrence: None)
  Receive Date: 20070215
  Receipt Date: 20070130
  Transmission Date: 20070707
  Serious: Yes (Life-Threatening, Hospitalization)
  Sender: FDA-Public Use
  Company Number: 2006MP001059

PATIENT
  Age: 76 Year
  Sex: Male

DRUGS (5)
  1. DACOGEN [Suspect]
     Indication: MYELODYSPLASTIC SYNDROME
     Dosage: 20 MG/M**2; QD; IV
     Route: 042
     Dates: start: 20060220, end: 20060911
  2. EXJADE [Concomitant]
  3. CYMBALTA [Concomitant]
  4. GLUCOVANCE [Concomitant]
  5. DIOVAN HCT [Concomitant]

REACTIONS (7)
  - ANTI-PLATELET ANTIBODY POSITIVE [None]
  - HAEMOLYSIS [None]
  - IDIOPATHIC THROMBOCYTOPENIC PURPURA [None]
  - NEUTROPENIA [None]
  - PNEUMONIA [None]
  - SEPSIS [None]
  - SPLENOMEGALY [None]
